FAERS Safety Report 11905901 (Version 4)
Quarter: 2016Q2

REPORT INFORMATION
  Report Type: Report from Study
  Country: US (occurrence: US)
  Receive Date: 20160111
  Receipt Date: 20160526
  Transmission Date: 20160815
  Serious: Yes (Congenital Anomaly)
  Sender: FDA-Public Use
  Company Number: US-ROCHE-1688883

PATIENT
  Age: 0 Day
  Sex: Female
  Weight: 3.13 kg

DRUGS (4)
  1. METRONIDAZOLE. [Concomitant]
     Active Substance: METRONIDAZOLE
  2. CEFAZOLINE [Concomitant]
     Active Substance: CEFAZOLIN SODIUM
  3. MYCOPHENOLATE MOFETIL. [Suspect]
     Active Substance: MYCOPHENOLATE MOFETIL
     Indication: PRODUCT USED FOR UNKNOWN INDICATION
     Route: 064
  4. CLONAZEPAM. [Suspect]
     Active Substance: CLONAZEPAM
     Indication: PRODUCT USED FOR UNKNOWN INDICATION
     Route: 064

REACTIONS (6)
  - Cleft lip and palate [Not Recovered/Not Resolved]
  - Congenital genital malformation [Not Recovered/Not Resolved]
  - Congenital musculoskeletal anomaly [Not Recovered/Not Resolved]
  - Spinal disorder [Not Recovered/Not Resolved]
  - Anal atresia [Not Recovered/Not Resolved]
  - Foetal exposure during pregnancy [Unknown]

NARRATIVE: CASE EVENT DATE: 20151229
